FAERS Safety Report 6522982-4 (Version None)
Quarter: 2009Q4

REPORT INFORMATION
  Report Type: 
  Country: None (occurrence: None)
  Receive Date: 20091230
  Receipt Date: 20091218
  Transmission Date: 20100525
  Serious: Yes (Other)
  Sender: FDA-Public Use
  Company Number: JP-WATSON-2009-10647

PATIENT
  Sex: Male

DRUGS (1)
  1. RAPAFLO [Suspect]
     Indication: BENIGN PROSTATIC HYPERPLASIA
     Dosage: 4 MG, BID
     Route: 048
     Dates: start: 20090911, end: 20091121

REACTIONS (6)
  - DIARRHOEA [None]
  - MALAISE [None]
  - MYALGIA [None]
  - MYOGLOBINURIA [None]
  - NASAL CONGESTION [None]
  - RHABDOMYOLYSIS [None]
